FAERS Safety Report 5602992-1 (Version None)
Quarter: 2008Q1

REPORT INFORMATION
  Report Type: 
  Country: None (occurrence: None)
  Receive Date: 20080125
  Receipt Date: 20080115
  Transmission Date: 20080703
  Serious: Yes (Other)
  Sender: FDA-Public Use
  Company Number: US-PFIZER INC-2001049112US

PATIENT
  Sex: Male

DRUGS (5)
  1. CELEBREX [Suspect]
     Indication: ARTHRALGIA
     Route: 048
     Dates: start: 20010302, end: 20010313
  2. CELEBREX [Suspect]
     Indication: ROTATOR CUFF SYNDROME
  3. MINOCYCLINE HCL [Concomitant]
  4. VITAMIN CAP [Concomitant]
  5. ASCORBIC ACID [Concomitant]

REACTIONS (2)
  - CONVULSION [None]
  - SYNCOPE [None]
